FAERS Safety Report 22074197 (Version 3)
Quarter: 2023Q1

REPORT INFORMATION
  Report Type: Report from Study
  Country: JP (occurrence: JP)
  Receive Date: 20230308
  Receipt Date: 20230321
  Transmission Date: 20230417
  Serious: Yes (Other)
  Sender: FDA-Public Use
  Company Number: JP-UCBJ-CD202302485UCBPHAPROD

PATIENT
  Age: 4 Year
  Sex: Male

DRUGS (3)
  1. VIMPAT [Suspect]
     Active Substance: LACOSAMIDE
     Indication: Generalised tonic-clonic seizure
     Dosage: UNK
     Route: 048
     Dates: start: 20230220
  2. VIMPAT [Suspect]
     Active Substance: LACOSAMIDE
     Dosage: 2 MILLIGRAM/KILOGRAM
     Route: 048
     Dates: start: 20230220
  3. VIMPAT [Suspect]
     Active Substance: LACOSAMIDE
     Dosage: 4 MILLIGRAM/KILOGRAM
     Route: 048
     Dates: start: 20230227, end: 20230228

REACTIONS (1)
  - Epilepsy [Unknown]

NARRATIVE: CASE EVENT DATE: 20230227
